FAERS Safety Report 6275171-5 (Version None)
Quarter: 2009Q3

REPORT INFORMATION
  Report Type: 
  Country: None (occurrence: None)
  Receive Date: 20090721
  Receipt Date: 20090713
  Transmission Date: 20100115
  Serious: Yes (Life-Threatening)
  Sender: FDA-Public Use
  Company Number: JP-ASTRAZENECA-2009SE05128

PATIENT
  Sex: Female

DRUGS (11)
  1. BLOPRESS [Suspect]
     Indication: HYPERTENSION
     Route: 048
     Dates: start: 20030312
  2. MOBIC [Interacting]
     Indication: ARTHRALGIA
     Route: 048
     Dates: start: 20090101, end: 20090306
  3. TANATRIL [Interacting]
     Route: 048
     Dates: start: 20021211
  4. TAKEPRON [Concomitant]
     Route: 048
     Dates: start: 20090101, end: 20090306
  5. EUGLUCON [Concomitant]
     Route: 048
     Dates: start: 20021211
  6. KINEDAK [Concomitant]
     Route: 048
     Dates: start: 20021211
  7. BAKUMONDOUTO [Concomitant]
     Route: 048
     Dates: start: 20050608
  8. JUVELA N [Concomitant]
     Route: 048
     Dates: start: 20061222
  9. SINGULAIR [Concomitant]
     Route: 048
     Dates: start: 20071217
  10. METFORMIN HCL [Concomitant]
     Route: 048
     Dates: start: 20080112
  11. ANPLAG [Concomitant]
     Route: 048
     Dates: start: 20090101, end: 20090306

REACTIONS (2)
  - DRUG INTERACTION [None]
  - HYPERTENSION [None]
